FAERS Safety Report 17601563 (Version 3)
Quarter: 2022Q2

REPORT INFORMATION
  Report Type: Spontaneous
  Country: TW (occurrence: TW)
  Receive Date: 20200331
  Receipt Date: 20220519
  Transmission Date: 20220721
  Serious: Yes (Hospitalization)
  Sender: FDA-Public Use
  Company Number: TW-CHUGAI-A2020016989ROCHE

PATIENT
  Sex: Female
  Weight: 54 kg

DRUGS (1)
  1. ALECENSA [Suspect]
     Active Substance: ALECTINIB HYDROCHLORIDE
     Indication: Product used for unknown indication
     Dosage: 4 BID/600 MG
     Route: 048
     Dates: start: 20200102, end: 20200117

REACTIONS (1)
  - Toxic epidermal necrolysis [Not Recovered/Not Resolved]
